FAERS Safety Report 12551572 (Version 6)
Quarter: 2017Q1

REPORT INFORMATION
  Report Type: Report from Study
  Country: US (occurrence: US)
  Receive Date: 20160713
  Receipt Date: 20170208
  Transmission Date: 20170428
  Serious: Yes (Hospitalization)
  Sender: FDA-Public Use
  Company Number: PHEH2016US016856

PATIENT
  Age: 54 Year
  Sex: Female
  Weight: 81.63 kg

DRUGS (2)
  1. GILENYA [Suspect]
     Active Substance: FINGOLIMOD HYDROCHLORIDE
     Indication: MULTIPLE SCLEROSIS
     Dosage: 0.5 MG, QD
     Route: 048
     Dates: start: 20131008
  2. GILENYA [Suspect]
     Active Substance: FINGOLIMOD HYDROCHLORIDE
     Dosage: 0.5 MG, QD
     Route: 048
     Dates: start: 20150330

REACTIONS (11)
  - Blindness transient [Unknown]
  - White blood cell count decreased [Unknown]
  - Headache [Unknown]
  - Visual impairment [Unknown]
  - Eye pain [Unknown]
  - Vision blurred [Recovered/Resolved]
  - Facial paresis [Recovered/Resolved]
  - Stomatitis [Recovered/Resolved]
  - Visual acuity reduced [Unknown]
  - Urinary tract infection bacterial [Recovered/Resolved]
  - Dizziness [Recovered/Resolved]

NARRATIVE: CASE EVENT DATE: 20160614
